FAERS Safety Report 13089188 (Version 2)
Quarter: 2017Q1

REPORT INFORMATION
  Report Type: Spontaneous
  Country: US (occurrence: US)
  Receive Date: 20170105
  Receipt Date: 20170216
  Transmission Date: 20170428
  Serious: Yes (Hospitalization, Other)
  Sender: FDA-Public Use
  Company Number: US-SAOL THERAPEUTICS-2016SAO01323

PATIENT
  Age: 29 Year
  Sex: Female

DRUGS (3)
  1. BACLOFEN. [Suspect]
     Active Substance: BACLOFEN
     Indication: MUSCLE SPASTICITY
     Dosage: UNK UNK, \DAY
     Route: 037
  2. SALINE [Suspect]
     Active Substance: SODIUM CHLORIDE
     Dosage: UNK
  3. BACLOFEN. [Suspect]
     Active Substance: BACLOFEN
     Indication: HEAD INJURY

REACTIONS (7)
  - Cholecystectomy [Unknown]
  - Device damage [Unknown]
  - Pancreatitis [Unknown]
  - Road traffic accident [Unknown]
  - Cognitive disorder [Unknown]
  - Paralysis [Unknown]
  - Shunt malfunction [Unknown]

NARRATIVE: CASE EVENT DATE: 201611
